FAERS Safety Report 24013573 (Version 1)
Quarter: 2024Q2

REPORT INFORMATION
  Report Type: Spontaneous
  Country: US (occurrence: US)
  Receive Date: 20240626
  Receipt Date: 20240626
  Transmission Date: 20240716
  Serious: No
  Sender: FDA-Public Use
  Company Number: US-ALKERMES INC.-ALK-2024-001654

PATIENT
  Sex: Male
  Weight: 91.61 kg

DRUGS (8)
  1. VIVITROL [Suspect]
     Active Substance: NALTREXONE
     Indication: Alcoholism
     Dosage: 380 MILLIGRAM, QMO
     Route: 030
     Dates: start: 20240205
  2. VIVITROL [Suspect]
     Active Substance: NALTREXONE
     Indication: Drug dependence
  3. OXYCODONE [Suspect]
     Active Substance: OXYCODONE\OXYCODONE HYDROCHLORIDE
     Indication: Product used for unknown indication
     Dosage: UNK
     Route: 048
     Dates: start: 20240513, end: 20240513
  4. OXYCODONE [Suspect]
     Active Substance: OXYCODONE\OXYCODONE HYDROCHLORIDE
     Dosage: LOWER DOSE
     Dates: start: 202402
  5. PROZAC [Concomitant]
     Active Substance: FLUOXETINE HYDROCHLORIDE
     Indication: Product used for unknown indication
     Dosage: UNK
     Route: 065
  6. COUMADIN [Concomitant]
     Active Substance: WARFARIN SODIUM
     Indication: Product used for unknown indication
     Dosage: UNK
     Route: 065
  7. NALTREXONE [Concomitant]
     Active Substance: NALTREXONE
     Indication: Alcoholism
     Dosage: UNK
     Route: 048
  8. NALTREXONE [Concomitant]
     Active Substance: NALTREXONE
     Indication: Drug dependence

REACTIONS (5)
  - Lack of injection site rotation [Recovered/Resolved]
  - Contraindicated product administered [Recovered/Resolved]
  - Sciatica [Unknown]
  - Streptococcal infection [Unknown]
  - Back pain [Unknown]

NARRATIVE: CASE EVENT DATE: 20240101
